FAERS Safety Report 4325561-2 (Version None)
Quarter: 2004Q1

REPORT INFORMATION
  Report Type: 
  Country: None (occurrence: None)
  Receive Date: 20040324
  Receipt Date: 20040302
  Transmission Date: 20041129
  Serious: Yes (Hospitalization)
  Sender: FDA-Public Use
  Company Number: MEDI-0001522

PATIENT
  Age: 2 Month
  Sex: Male
  Weight: 4.536 kg

DRUGS (3)
  1. SYNAGIS [Suspect]
     Indication: ANTIVIRAL PROPHYLAXIS
     Dosage: SEE IMAGE
     Route: 030
     Dates: start: 20031129, end: 20040115
  2. SYNAGIS [Suspect]
     Indication: ANTIVIRAL PROPHYLAXIS
     Dosage: SEE IMAGE
     Route: 030
     Dates: start: 20031129
  3. SYNAGIS [Suspect]
     Indication: ANTIVIRAL PROPHYLAXIS
     Dosage: SEE IMAGE
     Route: 030
     Dates: start: 20040201

REACTIONS (9)
  - APNOEA [None]
  - ATELECTASIS [None]
  - COMA [None]
  - DECREASED APPETITE [None]
  - INJECTION SITE NECROSIS [None]
  - IRRITABILITY [None]
  - LUNG INFILTRATION [None]
  - PNEUMONIA RESPIRATORY SYNCYTIAL VIRAL [None]
  - RESPIRATORY FAILURE [None]
